FAERS Safety Report 8398117 (Version 2)
Quarter: 2012Q4

REPORT INFORMATION
  Report Type: 
  Country: US (occurrence: US)
  Receive Date: 20120209
  Receipt Date: 20121221
  Transmission Date: 20130627
  Serious: Yes (Death, Congenital Anomaly, Other)
  Sender: FDA-Public Use
  Company Number: US-PFIZER INC-2012032046

PATIENT
  Sex: Female
  Weight: 2 kg

DRUGS (7)
  1. ZOLOFT [Suspect]
     Indication: DEPRESSION
     Dosage: UNK
     Route: 064
     Dates: start: 20100523, end: 20100615
  2. TYLENOL [Concomitant]
     Dosage: UNK
     Route: 064
  3. BENADRYL [Concomitant]
     Dosage: UNK
     Route: 064
  4. PRENATAL VITAMINS [Concomitant]
     Dosage: UNK
     Route: 064
  5. ATARAX [Concomitant]
     Dosage: UNK
     Route: 064
  6. ALBUTEROL [Concomitant]
     Dosage: UNK
     Route: 064
  7. SINGULAIR [Concomitant]
     Dosage: UNK
     Route: 064

REACTIONS (9)
  - Maternal exposure timing unspecified [Fatal]
  - Holoprosencephaly [Fatal]
  - Patent ductus arteriosus [Fatal]
  - Cleft lip and palate [Fatal]
  - Atrial septal defect [Fatal]
  - Hypotelorism of orbit [Fatal]
  - Macrocephaly [Fatal]
  - Failure to thrive [Fatal]
  - Respiratory distress [Fatal]
